FAERS Safety Report 11128682 (Version 2)
Quarter: 2015Q3

REPORT INFORMATION
  Report Type: Spontaneous
  Country: FR (occurrence: None)
  Receive Date: 20150519
  Receipt Date: 20150707
  Transmission Date: 20151125
  Serious: No
  Sender: FDA-Public Use
  Company Number: FR-2014-3951

PATIENT
  Age: 54 Year
  Sex: Female
  Weight: 82 kg

DRUGS (6)
  1. ANTIHYPERTENSIVES [Concomitant]
     Active Substance: UNSPECIFIED INGREDIENT
  2. MOPRAL (OMEPRAZOLE) [Concomitant]
     Active Substance: OMEPRAZOLE SODIUM
  3. NAVELBINE [Suspect]
     Active Substance: VINORELBINE TARTRATE
     Indication: BREAST CANCER METASTATIC
     Route: 048
     Dates: start: 201405, end: 201503
  4. BISPHOSPHONATES [Concomitant]
     Active Substance: UNSPECIFIED INGREDIENT
  5. XGEVA [Concomitant]
     Active Substance: DENOSUMAB
  6. CACIT VITAMIN D3 (CALCIUM CARBONATE, COLECALCIFEROL) [Concomitant]

REACTIONS (3)
  - Visual acuity reduced [None]
  - Cataract [None]
  - Myopia [None]

NARRATIVE: CASE EVENT DATE: 201410
